FAERS Safety Report 4337821-X (Version None)
Quarter: 2004Q2

REPORT INFORMATION
  Report Type: 
  Country: None (occurrence: None)
  Receive Date: 20040406
  Receipt Date: 20030717
  Transmission Date: 20050107
  Serious: Yes (Other)
  Sender: FDA-Public Use
  Company Number: APP200301768 (0)

PATIENT
  Age: 60 Year
  Sex: Female
  Weight: 79.3795 kg

DRUGS (2)
  1. HEPARIN SODIUM INJECTION [Suspect]
     Indication: COAGULOPATHY
     Dosage: UNK (6000 USP UNITS,  FOR EVERY HEMODIALYSIS TREATMENT ), HEMODIALYSIS
  2. HEPARIN SODIUM INJECTION [Suspect]
     Indication: HAEMODIALYSIS
     Dosage: UNK (6000 USP UNITS,  FOR EVERY HEMODIALYSIS TREATMENT ), HEMODIALYSIS

REACTIONS (1)
  - COAGULATION TIME PROLONGED [None]
